FAERS Safety Report 13947058 (Version 3)
Quarter: 2017Q3

REPORT INFORMATION
  Report Type: Spontaneous
  Country: US (occurrence: US)
  Receive Date: 20170907
  Receipt Date: 20170918
  Transmission Date: 20171128
  Serious: Yes (Other)
  Sender: FDA-Public Use
  Company Number: US-BEH-2017083295

PATIENT
  Sex: Male

DRUGS (1)
  1. HAEMATE P [Suspect]
     Active Substance: ANTIHEMOPHILIC FACTOR HUMAN
     Indication: SURGERY
     Dosage: 1 DF, TOT
     Route: 065
     Dates: start: 201706

REACTIONS (5)
  - Papilloedema [Unknown]
  - Visual impairment [Unknown]
  - Headache [Unknown]
  - Optic neuritis [Unknown]
  - Optic nerve compression [Unknown]

NARRATIVE: CASE EVENT DATE: 2017
